FAERS Safety Report 9167453 (Version 1)
Quarter: 2013Q1

REPORT INFORMATION
  Report Type: Spontaneous
  Country: US (occurrence: None)
  Receive Date: 20130301
  Receipt Date: 20130301
  Transmission Date: 20140127
  Serious: Yes (Other)
  Sender: FDA-Public Use
  Company Number: 1611009

PATIENT
  Age: 10 Year
  Sex: Male

DRUGS (11)
  1. CYTARABINE [Suspect]
     Indication: ACUTE MYELOID LEUKAEMIA
     Route: 037
  2. LORAZEPAM [Suspect]
     Indication: ANXIETY
  3. METHADONE [Suspect]
     Indication: PAIN
  4. UNSPECIFIED INGREDIENTS [Suspect]
     Indication: HYPERTENSION
  5. CLONIDINE [Suspect]
     Indication: HYPERTENSION
  6. THERAPEUTIC RADIOPHARMACEUTICALS [Suspect]
     Indication: ACUTE MYELOID LEUKAEMIA
  7. QUETIAPINE [Suspect]
     Indication: ABNORMAL BEHAVIOUR
  8. GABAPENTIN [Suspect]
     Indication: PAIN
  9. MELATONIN [Concomitant]
  10. METHYLPREDNISOLONE [Concomitant]
  11. NALOXONE [Concomitant]

REACTIONS (3)
  - Sleep apnoea syndrome [None]
  - Cerebral atrophy [None]
  - Renal failure [None]
